FAERS Safety Report 17509220 (Version 2)
Quarter: 2020Q1

REPORT INFORMATION
  Report Type: Spontaneous
  Country: US (occurrence: US)
  Receive Date: 20200306
  Receipt Date: 20200319
  Transmission Date: 20200409
  Serious: Yes (Other)
  Sender: FDA-Public Use
  Company Number: US-PFIZER INC-2020098059

PATIENT
  Sex: Male
  Weight: 2.58 kg

DRUGS (3)
  1. TRASTUZUMAB PFIZER [Suspect]
     Active Substance: TRASTUZUMAB
     Dosage: 2 MG/KG, WEEKLY (WEEKLY DOSES)
     Route: 064
  2. VINORELBINE [Suspect]
     Active Substance: VINORELBINE TARTRATE
     Indication: BREAST CANCER METASTATIC
     Dosage: 25 MG/M2, CYCLIC (WEEKLY FOR 3 WEEKS FOLLOWED BY A WEEK OF REST)
     Route: 064
  3. TRASTUZUMAB PFIZER [Suspect]
     Active Substance: TRASTUZUMAB
     Indication: BREAST CANCER METASTATIC
     Dosage: 4 MG/KG, CYCLIC (LOADING DOSE)
     Route: 064

REACTIONS (2)
  - Premature baby [Unknown]
  - Maternal exposure during pregnancy [Unknown]
